FAERS Safety Report 16611203 (Version 1)
Quarter: 2019Q3

REPORT INFORMATION
  Report Type: Spontaneous
  Country: US (occurrence: US)
  Receive Date: 20190722
  Receipt Date: 20190722
  Transmission Date: 20191004
  Serious: Yes (Other)
  Sender: FDA-Public Use
  Company Number: US-SA-2019SA195776

PATIENT
  Sex: Female
  Weight: 82.55 kg

DRUGS (1)
  1. AUBAGIO [Suspect]
     Active Substance: TERIFLUNOMIDE
     Indication: MULTIPLE SCLEROSIS
     Dosage: 1 DF, QD
     Route: 048
     Dates: start: 20190711

REACTIONS (5)
  - Flatulence [Unknown]
  - Multiple sclerosis [Unknown]
  - Hot flush [Unknown]
  - Nausea [Unknown]
  - Balance disorder [Unknown]
